FAERS Safety Report 23359016 (Version 2)
Quarter: 2024Q1

REPORT INFORMATION
  Report Type: Spontaneous
  Country: IT (occurrence: IT)
  Receive Date: 20240102
  Receipt Date: 20240109
  Transmission Date: 20240409
  Serious: Yes (Death, Other)
  Sender: FDA-Public Use
  Company Number: IT-GILEAD-2024-0656963

PATIENT
  Age: 66 Year
  Sex: Male

DRUGS (2)
  1. YESCARTA [Suspect]
     Active Substance: AXICABTAGENE CILOLEUCEL
     Indication: Primary mediastinal large B-cell lymphoma
     Dosage: UNK
     Route: 042
     Dates: start: 20211115, end: 20211115
  2. CISPLATIN;CYTARABINE;DEXAMETHASONE;RITUXIMAB [Concomitant]

REACTIONS (1)
  - Disease progression [Fatal]
